FAERS Safety Report 6667449-8 (Version None)
Quarter: 2010Q2

REPORT INFORMATION
  Report Type: 
  Country: None (occurrence: None)
  Receive Date: 20100405
  Receipt Date: 20100326
  Transmission Date: 20101027
  Serious: Yes (Life-Threatening, Hospitalization)
  Sender: FDA-Public Use
  Company Number: US-ROCHE-683931

PATIENT
  Sex: Male
  Weight: 101.6 kg

DRUGS (11)
  1. BEVACIZUMAB [Suspect]
     Indication: METASTATIC RENAL CELL CARCINOMA
     Dosage: FREQUENCY: DAY1 AND DAY15 EACH CYCLE
     Route: 065
  2. TEMSIROLIMUS [Suspect]
     Indication: METASTATIC RENAL CELL CARCINOMA
     Dosage: FREQUENCY: DAY 1, DAY 8 AND DAY 15, 22 EACH CYCLE
     Route: 065
  3. NORVASC [Concomitant]
  4. CITALOPRAM HYDROBROMIDE [Concomitant]
  5. FLUTICASONE PROPIONATE [Concomitant]
     Dosage: FORM: NASAL SPRAY
  6. GEMFIBROZIL [Concomitant]
  7. SYNTHROID [Concomitant]
  8. LISINOPRIL [Concomitant]
  9. METOPROLOL SUCCINATE [Concomitant]
     Route: 048
  10. COUMADIN [Concomitant]
  11. AMBIEN [Concomitant]

REACTIONS (5)
  - CHEST PAIN [None]
  - COMA [None]
  - EXTRASYSTOLES [None]
  - HYPOTENSION [None]
  - SYNCOPE [None]
